FAERS Safety Report 7476990-X (Version None)
Quarter: 2011Q2

REPORT INFORMATION
  Report Type: 
  Country: None (occurrence: None)
  Receive Date: 20110512
  Receipt Date: 20101230
  Transmission Date: 20111010
  Serious: No
  Sender: FDA-Public Use
  Company Number: US-BAYER-2011-000495

PATIENT
  Sex: Male

DRUGS (1)
  1. AVELOX [Suspect]
     Indication: PSEUDOMONAS INFECTION
     Dosage: 400 MG, QD
     Dates: start: 20101223

REACTIONS (1)
  - PSEUDOMONAS INFECTION [None]
